FAERS Safety Report 6145880-7 (Version None)
Quarter: 2009Q2

REPORT INFORMATION
  Report Type: 
  Country: None (occurrence: None)
  Receive Date: 20090407
  Receipt Date: 20090401
  Transmission Date: 20091009
  Serious: Yes (Hospitalization)
  Sender: FDA-Public Use
  Company Number: BR-ROCHE-625307

PATIENT
  Sex: Female
  Weight: 42 kg

DRUGS (5)
  1. RIVOTRIL [Suspect]
     Indication: ANXIETY
     Route: 048
     Dates: start: 20080801, end: 20081222
  2. RIVOTRIL [Suspect]
     Dosage: BATCH NUMBER: RJ0978, STRENGTH: 2 MG
     Route: 048
     Dates: start: 20081227
  3. GARDENAL [Suspect]
     Indication: WITHDRAWAL SYNDROME
     Route: 042
     Dates: start: 20081225, end: 20081225
  4. MICRODIOL [Concomitant]
     Indication: CONTRACEPTION
     Route: 048
     Dates: start: 20010101
  5. MIOSAN [Concomitant]
     Indication: BURSITIS
     Dosage: DOSE: I TAB SOMETIME
     Route: 048
     Dates: start: 20080501

REACTIONS (18)
  - ANXIETY [None]
  - APHASIA [None]
  - BLOOD PRESSURE INADEQUATELY CONTROLLED [None]
  - DRY MOUTH [None]
  - HAEMANGIOMA [None]
  - INDURATION [None]
  - INSOMNIA [None]
  - ORAL MUCOSAL DISCOLOURATION [None]
  - PALPITATIONS [None]
  - PARAESTHESIA [None]
  - POLLAKIURIA [None]
  - POLYP [None]
  - SENSORY LOSS [None]
  - SKIN DISCOLOURATION [None]
  - SOMNOLENCE [None]
  - TREMOR [None]
  - VISION BLURRED [None]
  - WITHDRAWAL SYNDROME [None]
